FAERS Safety Report 19170526 (Version 1)
Quarter: 2021Q2

REPORT INFORMATION
  Report Type: Spontaneous
  Country: US (occurrence: US)
  Receive Date: 20210422
  Receipt Date: 20210422
  Transmission Date: 20210717
  Serious: No
  Sender: FDA-Public Use
  Company Number: US-IGSA-BIG0011336

PATIENT
  Sex: Female
  Weight: 57.6 kg

DRUGS (32)
  1. PEPCID AC [Concomitant]
     Active Substance: FAMOTIDINE
     Indication: PREMEDICATION
  2. COMBIVENT [Concomitant]
     Active Substance: ALBUTEROL SULFATE\IPRATROPIUM BROMIDE
     Dosage: UNK
  3. TESSALON [Concomitant]
     Active Substance: BENZONATATE
     Dosage: 100 MILLIGRAM
  4. ALBUTEROL SULFATE. [Concomitant]
     Active Substance: ALBUTEROL SULFATE
  5. PREDNISONE. [Concomitant]
     Active Substance: PREDNISONE
     Dosage: 20 MILLIGRAM
  6. AFRIN [Concomitant]
     Active Substance: OXYMETAZOLINE
     Route: 045
  7. ERYTHROMYCIN. [Concomitant]
     Active Substance: ERYTHROMYCIN
  8. IPRATROPIUM/ALBUTEROL [Concomitant]
     Active Substance: ALBUTEROL\IPRATROPIUM
  9. PHENTERMINE. [Concomitant]
     Active Substance: PHENTERMINE
     Dosage: 37.5 MILLIGRAM
  10. PROMETHAZINE HCL [Concomitant]
     Active Substance: PROMETHAZINE HYDROCHLORIDE
  11. TYLENOL [Concomitant]
     Active Substance: ACETAMINOPHEN
     Indication: PREMEDICATION
  12. SYNTHROID [Concomitant]
     Active Substance: LEVOTHYROXINE SODIUM
     Dosage: 150 MICROGRAM, QD
     Route: 048
  13. ALBUTEROL [SALBUTAMOL] [Concomitant]
     Active Substance: ALBUTEROL
     Dosage: UNK
  14. PLAQUENIL [HYDROXYCHLOROQUINE PHOSPHATE] [Concomitant]
     Active Substance: HYDROXYCHLOROQUINE DIPHOSPHATE
     Dosage: 200 MILLIGRAM, QD
     Route: 048
  15. LEVAQUIN [Concomitant]
     Active Substance: LEVOFLOXACIN
     Dosage: 750 MILLIGRAM
  16. SPORANOX [Concomitant]
     Active Substance: ITRACONAZOLE
     Dosage: 100 MILLIGRAM
  17. CHOLECALCIFEROL [Concomitant]
     Active Substance: CHOLECALCIFEROL
  18. CYCLOSPORINE. [Concomitant]
     Active Substance: CYCLOSPORINE
  19. PROVENTIL HFA [Concomitant]
     Active Substance: ALBUTEROL SULFATE
  20. EXCEDRIN [Concomitant]
     Active Substance: ACETAMINOPHEN\ASPIRIN\CAFFEINE
     Indication: PREMEDICATION
  21. TOPAMAX [Concomitant]
     Active Substance: TOPIRAMATE
     Dosage: 200 MILLIGRAM, QD
     Route: 048
  22. XACIN                              /00668101/ [Concomitant]
     Dosage: 500 MILLIGRAM
  23. WELLBUTRIN [Concomitant]
     Active Substance: BUPROPION HYDROCHLORIDE
     Dosage: 150 MILLIGRAM
  24. CLARITIN [Concomitant]
     Active Substance: LORATADINE
     Indication: PREMEDICATION
  25. PLAQUENIL                          /00072602/ [Concomitant]
     Active Substance: HYDROXYCHLOROQUINE DIPHOSPHATE
     Dosage: 200 MILLIGRAM
  26. GAMUNEX?C [Suspect]
     Active Substance: HUMAN IMMUNOGLOBULIN G
     Indication: IMMUNODEFICIENCY COMMON VARIABLE
     Dosage: 6 GRAM, Q.WK.
     Route: 058
     Dates: start: 2018
  27. BUDESONIDE. [Concomitant]
     Active Substance: BUDESONIDE
  28. VITAMIN B12 [Concomitant]
     Active Substance: CYANOCOBALAMIN
     Dosage: 1 GRAM, Q.WK.
     Route: 058
  29. NASACORT [Concomitant]
     Active Substance: TRIAMCINOLONE ACETONIDE
  30. POTASSIUM CHLORIDE. [Concomitant]
     Active Substance: POTASSIUM CHLORIDE
  31. BENADRYL [Concomitant]
     Active Substance: DIPHENHYDRAMINE HYDROCHLORIDE
     Indication: PREMEDICATION
  32. CYTOMEL [Concomitant]
     Active Substance: LIOTHYRONINE SODIUM
     Dosage: 30 MICROGRAM, QD
     Route: 048

REACTIONS (8)
  - Illness [Recovered/Resolved]
  - Migraine [Recovered/Resolved]
  - Infusion site pain [Recovered/Resolved]
  - Hypersensitivity [Recovered/Resolved]
  - Infusion site swelling [Recovered/Resolved]
  - Pain [Recovered/Resolved]
  - Influenza like illness [Recovered/Resolved]
  - Eye pain [Recovered/Resolved]

NARRATIVE: CASE EVENT DATE: 2018
